FAERS Safety Report 23841196 (Version 1)
Quarter: 2024Q2

REPORT INFORMATION
  Report Type: Spontaneous
  Country: IN (occurrence: IN)
  Receive Date: 20240510
  Receipt Date: 20240510
  Transmission Date: 20240715
  Serious: Yes (Other)
  Sender: FDA-Public Use
  Company Number: IN-SANDOZ-SDZ2024IN011021

PATIENT
  Sex: Female

DRUGS (3)
  1. TACROLIMUS [Suspect]
     Active Substance: TACROLIMUS
     Indication: Renal transplant
     Dosage: 4 MG, QD (2 MG, BID)
     Route: 048
     Dates: start: 20221124
  2. TACROLIMUS [Suspect]
     Active Substance: TACROLIMUS
     Dosage: 5 MG, QD (2.5 MG, BID)
     Route: 048
  3. MYFORTIC [Suspect]
     Active Substance: MYCOPHENOLATE SODIUM
     Indication: Renal transplant
     Dosage: 2.5 MG, BID
     Route: 065
     Dates: start: 20221124

REACTIONS (9)
  - Hyperthyroidism [Unknown]
  - Hypertension [Unknown]
  - Constipation [Unknown]
  - Pain in extremity [Unknown]
  - Insomnia [Unknown]
  - Alopecia [Unknown]
  - Dyspnoea [Unknown]
  - Arthralgia [Unknown]
  - Back pain [Unknown]
